FAERS Safety Report 6094078-X (Version None)
Quarter: 2009Q1

REPORT INFORMATION
  Report Type: 
  Country: None (occurrence: None)
  Receive Date: 20090224
  Receipt Date: 20090224
  Transmission Date: 20090719
  Serious: Yes (Other)
  Sender: FDA-Public Use
  Company Number: None

PATIENT
  Sex: Female
  Weight: 79.8331 kg

DRUGS (1)
  1. LAMOTRIGINE [Suspect]
     Indication: CONVULSION
     Dosage: 150MG 2X DAY
     Dates: start: 20090212, end: 20090214

REACTIONS (5)
  - DIZZINESS [None]
  - LETHARGY [None]
  - PRODUCT QUALITY ISSUE [None]
  - RASH [None]
  - VOMITING [None]
